FAERS Safety Report 14874481 (Version 1)
Quarter: 2018Q2

REPORT INFORMATION
  Report Type: Other
  Country: GB (occurrence: GB)
  Receive Date: 20180510
  Receipt Date: 20180510
  Transmission Date: 20180711
  Serious: Yes (Hospitalization, Other)
  Sender: FDA-Public Use
  Company Number: GB-ASPEN-GLO2018GB004554

PATIENT
  Age: 59 Year
  Sex: Male

DRUGS (37)
  1. POLYHEXAMETHYLENE BIGUANIDE HYDROCHLORIDE [Suspect]
     Active Substance: POLIHEXANIDE HYDROCHLORIDE
     Dosage: UNK, HOURLY DAYTIME ONLY
     Route: 065
  2. VORICONAZOLE. [Suspect]
     Active Substance: VORICONAZOLE
     Dosage: 1 %
     Route: 065
  3. POSACONAZOLE [Suspect]
     Active Substance: POSACONAZOLE
     Dosage: 300 MG, QD
     Route: 048
  4. CHLORHEXIDINE [Suspect]
     Active Substance: CHLORHEXIDINE
     Dosage: 0.02 %, HOURLY DAY AND NIGHT
     Route: 065
  5. HEXAMIDINE [Concomitant]
     Active Substance: HEXAMIDINE
     Dosage: 006 %, UNK, HOURLY DAY AND NIGHT
     Route: 065
  6. PRED FORTE [Concomitant]
     Active Substance: PREDNISOLONE ACETATE
     Dosage: UNK, HOURLY
     Route: 065
  7. VORICONAZOLE. [Suspect]
     Active Substance: VORICONAZOLE
     Indication: ACANTHAMOEBA KERATITIS
     Dosage: 200 MG, BID
     Route: 065
  8. CHLORHEXIDINE [Suspect]
     Active Substance: CHLORHEXIDINE
     Dosage: UNK, DAY AND NIGHT
     Route: 065
  9. HEXAMIDINE [Concomitant]
     Active Substance: HEXAMIDINE
     Indication: ACANTHAMOEBA KERATITIS
     Dosage: 0.02 %, UNK 4 TIMES DAILY
     Route: 065
  10. HEXAMIDINE [Concomitant]
     Active Substance: HEXAMIDINE
     Dosage: UNK
     Route: 065
  11. HEXAMIDINE [Concomitant]
     Active Substance: HEXAMIDINE
     Dosage: 0.1 %, UNK 2-HOURLY
     Route: 065
  12. POLYHEXAMETHYLENE BIGUANIDE HYDROCHLORIDE [Suspect]
     Active Substance: POLIHEXANIDE HYDROCHLORIDE
     Dosage: UNK, HOURLY DAY AND NIGHT
     Route: 065
  13. CEFUROXIME. [Concomitant]
     Active Substance: CEFUROXIME
     Indication: ACANTHAMOEBA KERATITIS
     Dosage: 4 DF, QD
     Route: 065
  14. GENTAMICIN. [Concomitant]
     Active Substance: GENTAMICIN
     Dosage: UNK, HOURLY DAY AND NIGHT
     Route: 065
  15. VORICONAZOLE. [Suspect]
     Active Substance: VORICONAZOLE
     Dosage: INTRACAMERAL
     Route: 050
  16. LEVOFLOXACIN. [Concomitant]
     Active Substance: LEVOFLOXACIN
     Dosage: 0.5 %, UNK (REDUCED TO HOURLY DAYTIME ONLY)
     Route: 065
  17. METHYLPREDNISOLONE. [Concomitant]
     Active Substance: METHYLPREDNISOLONE
     Indication: ACANTHAMOEBA KERATITIS
     Dosage: 1 G, UNK
     Route: 042
  18. IMIDAZOLE [Concomitant]
     Active Substance: IMIDAZOLE
     Indication: ACANTHAMOEBA KERATITIS
     Dosage: UNK
     Route: 065
  19. DEXAMETHASONE. [Suspect]
     Active Substance: DEXAMETHASONE
     Indication: ACANTHAMOEBA KERATITIS
     Dosage: 0.4 MG, QD
     Route: 065
  20. DEXAMETHASONE. [Suspect]
     Active Substance: DEXAMETHASONE
     Dosage: 0.1 MG
     Route: 065
  21. TACROLIMUS. [Concomitant]
     Active Substance: TACROLIMUS
     Indication: PROPHYLAXIS
     Dosage: UNK
     Route: 065
  22. HEXAMIDINE [Concomitant]
     Active Substance: HEXAMIDINE
     Dosage: 0.1 %, UNK HOURLY
     Route: 065
  23. LEVOFLOXACIN. [Concomitant]
     Active Substance: LEVOFLOXACIN
     Indication: ACANTHAMOEBA KERATITIS
     Dosage: 0.5% HOURLY DAY AND NIGHT
     Route: 065
  24. LEVOFLOXACIN. [Concomitant]
     Active Substance: LEVOFLOXACIN
     Dosage: UNK, TWO HOURLY DAY ONLY
     Route: 065
  25. POLYHEXAMETHYLENE BIGUANIDE HYDROCHLORIDE [Suspect]
     Active Substance: POLIHEXANIDE HYDROCHLORIDE
     Indication: ACANTHAMOEBA KERATITIS
     Dosage: UNK, QID
     Route: 065
  26. POLYHEXAMETHYLENE BIGUANIDE HYDROCHLORIDE [Suspect]
     Active Substance: POLIHEXANIDE HYDROCHLORIDE
     Dosage: UNK
     Route: 065
  27. VORICONAZOLE. [Suspect]
     Active Substance: VORICONAZOLE
     Dosage: 400 MG, BID
     Route: 065
  28. POSACONAZOLE [Suspect]
     Active Substance: POSACONAZOLE
     Indication: ACANTHAMOEBA KERATITIS
     Dosage: 300 MG, BID, LOADING DOSE
     Route: 048
  29. GENTAMICIN. [Concomitant]
     Active Substance: GENTAMICIN
     Indication: ACANTHAMOEBA KERATITIS
     Dosage: 4 DF, QD
     Route: 065
  30. CHLORHEXIDINE [Suspect]
     Active Substance: CHLORHEXIDINE
     Dosage: 0.2 %, UNK, HOURLY
     Route: 065
  31. MILTEFOSINE [Concomitant]
     Active Substance: MILTEFOSINE
     Indication: PROPHYLAXIS
     Dosage: 50 MG, TID, 2.5 MG/KG/DAY
     Route: 048
  32. MILTEFOSINE [Concomitant]
     Active Substance: MILTEFOSINE
     Indication: ACANTHAMOEBA KERATITIS
     Dosage: UNK
     Route: 048
  33. POLYHEXAMETHYLENE BIGUANIDE HYDROCHLORIDE [Suspect]
     Active Substance: POLIHEXANIDE HYDROCHLORIDE
     Dosage: UNK, TWO HOURLY DAY ONLY
     Route: 065
  34. CHLORHEXIDINE [Suspect]
     Active Substance: CHLORHEXIDINE
     Indication: ACANTHAMOEBA KERATITIS
     Dosage: 0.2 UNK, UNK, 2 HOURLY.
     Route: 065
  35. TACROLIMUS. [Concomitant]
     Active Substance: TACROLIMUS
     Indication: TRANSPLANT FAILURE
     Dosage: 1 MG, BID
     Route: 048
  36. PRED FORTE [Concomitant]
     Active Substance: PREDNISOLONE ACETATE
     Indication: ACANTHAMOEBA KERATITIS
     Dosage: UNK, QID
     Route: 065
  37. PREDNISOLONE. [Concomitant]
     Active Substance: PREDNISOLONE
     Indication: ACANTHAMOEBA KERATITIS
     Dosage: 4 DF, QD
     Route: 065

REACTIONS (5)
  - Off label use [Unknown]
  - Adverse drug reaction [Unknown]
  - Drug ineffective for unapproved indication [Unknown]
  - Condition aggravated [Unknown]
  - Acanthamoeba keratitis [Not Recovered/Not Resolved]
